FAERS Safety Report 8161895-1 (Version None)
Quarter: 2012Q1

REPORT INFORMATION
  Report Type: 
  Country: None (occurrence: None)
  Receive Date: 20120224
  Receipt Date: 20111107
  Transmission Date: 20120608
  Serious: No
  Sender: FDA-Public Use
  Company Number: US-BRISTOL-MYERS SQUIBB COMPANY-16218562

PATIENT
  Age: 74 Year
  Sex: Female
  Weight: 79 kg

DRUGS (3)
  1. REMICADE [Suspect]
     Indication: RHEUMATOID ARTHRITIS
     Dosage: LYOPHILIZED POWER
     Route: 042
     Dates: start: 20010101
  2. METHOTREXATE [Concomitant]
     Indication: ARTHRITIS
     Route: 048
     Dates: start: 20010101
  3. GLUCOPHAGE [Suspect]
     Indication: DIABETES MELLITUS

REACTIONS (4)
  - WEIGHT FLUCTUATION [None]
  - SCRATCH [None]
  - HYPERTENSION [None]
  - SKIN BURNING SENSATION [None]
